FAERS Safety Report 8476873-2 (Version None)
Quarter: 2012Q2

REPORT INFORMATION
  Report Type: 
  Country: None (occurrence: None)
  Receive Date: 20120629
  Receipt Date: 20120618
  Transmission Date: 20120825
  Serious: Yes (Hospitalization)
  Sender: FDA-Public Use
  Company Number: DE-BIOGENIDEC-2012BI021509

PATIENT
  Age: 25 Year
  Sex: Female
  Weight: 49 kg

DRUGS (1)
  1. AVONEX [Suspect]
     Indication: RELAPSING-REMITTING MULTIPLE SCLEROSIS
     Route: 030
     Dates: start: 20090301

REACTIONS (3)
  - DISTURBANCE IN ATTENTION [None]
  - MUSCLE SPASMS [None]
  - SLEEP DISORDER [None]
